FAERS Safety Report 12859928 (Version 2)
Quarter: 2016Q4

REPORT INFORMATION
  Report Type: Spontaneous
  Country: JP (occurrence: JP)
  Receive Date: 20161019
  Receipt Date: 20161114
  Transmission Date: 20170207
  Serious: Yes (Other)
  Sender: FDA-Public Use
  Company Number: JP-GLAXOSMITHKLINE-JP2016JPN150654

PATIENT

DRUGS (1)
  1. SAMITREL [Suspect]
     Active Substance: ATOVAQUONE
     Route: 048

REACTIONS (2)
  - Seizure [Recovered/Resolved]
  - Myoclonus [Recovered/Resolved]
